FAERS Safety Report 6505072-6 (Version None)
Quarter: 2009Q4

REPORT INFORMATION
  Report Type: 
  Country: None (occurrence: None)
  Receive Date: 20091218
  Receipt Date: 20091210
  Transmission Date: 20100525
  Serious: Yes (Other)
  Sender: FDA-Public Use
  Company Number: IT-NOVOPROD-301989

PATIENT

DRUGS (1)
  1. NORDITROPIN [Suspect]
     Indication: DRUG USE FOR UNKNOWN INDICATION

REACTIONS (1)
  - NEOPLASM RECURRENCE [None]
